FAERS Safety Report 18417784 (Version 2)
Quarter: 2020Q4

REPORT INFORMATION
  Report Type: Report from Study
  Country: US (occurrence: US)
  Receive Date: 20201022
  Receipt Date: 20201105
  Transmission Date: 20210114
  Serious: Yes (Other)
  Sender: FDA-Public Use
  Company Number: US-GILEAD-2018-0344891

PATIENT
  Age: 66 Year
  Sex: Male
  Weight: 66.9 kg

DRUGS (70)
  1. FAMOTIDINE. [Concomitant]
     Active Substance: FAMOTIDINE
     Dosage: 20 MG, ONCE
     Dates: start: 20170525, end: 20170525
  2. ZOLPIDEM [Concomitant]
     Active Substance: ZOLPIDEM TARTRATE
     Dosage: UNK
     Dates: start: 20170531, end: 20170605
  3. MULTIVITAMIN                       /00097801/ [Concomitant]
     Active Substance: VITAMINS
     Dosage: UNK, QD
     Dates: start: 20170531, end: 20170609
  4. KEPPRA [Concomitant]
     Active Substance: LEVETIRACETAM
     Dosage: 500 MG, EVERY 12 HOURS
     Dates: start: 20170608
  5. KEPPRA [Concomitant]
     Active Substance: LEVETIRACETAM
     Dosage: 1500 MG, BID
     Dates: start: 20170615
  6. NORCO [Concomitant]
     Active Substance: ACETAMINOPHEN\HYDROCODONE BITARTRATE
     Dosage: 1 DF, Q6H, PRN
     Route: 048
     Dates: start: 20180117
  7. PHOSPHORUS [Concomitant]
     Active Substance: PHOSPHORUS
     Dosage: 500 MG, PRN
     Dates: start: 20170528, end: 20170804
  8. SODIUM PHOSPHATE [Concomitant]
     Active Substance: SODIUM PHOSPHATE
     Dosage: 10 MEQ, PRN
     Dates: start: 20170525, end: 20170715
  9. KTE-X19 [Suspect]
     Active Substance: AXICABTAGENE CILOLEUCEL
     Indication: ACUTE LYMPHOCYTIC LEUKAEMIA
     Dosage: 0.5 X 10 E6 T-CELLS/KG, SINGLE
     Route: 042
     Dates: start: 20170603, end: 20170603
  10. DEXAMETHASONE. [Concomitant]
     Active Substance: DEXAMETHASONE
     Dosage: 10 MG, Q6H, INTRAVENOUS
     Route: 042
     Dates: start: 20170608, end: 20170609
  11. LOPERAMIDE [Concomitant]
     Active Substance: LOPERAMIDE
     Dosage: 4 MG, PRN
     Dates: start: 20170610, end: 20180706
  12. ZOVIRAX [Concomitant]
     Active Substance: ACYCLOVIR
     Dosage: 800 MG, BID
     Dates: start: 20170530, end: 20180606
  13. LEVOFLOXACIN. [Concomitant]
     Active Substance: LEVOFLOXACIN
     Dosage: UNK
     Dates: start: 20170531, end: 20170604
  14. VIMPAT [Concomitant]
     Active Substance: LACOSAMIDE
     Dosage: 200 MG, PRN
     Dates: start: 20170617, end: 20180606
  15. SODIUM BICARBONATE W/SODIUM CHLORIDE [Concomitant]
     Active Substance: SODIUM BICARBONATE\SODIUM CHLORIDE
     Dosage: 5 ML, Q4H WHILE AWAKE
     Route: 048
     Dates: start: 20180128
  16. POTASSIUM CHLORIDE. [Concomitant]
     Active Substance: POTASSIUM CHLORIDE
     Dosage: 20 MEQ, PRN
     Dates: start: 20170525, end: 20170804
  17. LOPERAMIDE [Concomitant]
     Active Substance: LOPERAMIDE
     Dosage: UNK
     Dates: start: 20170525, end: 20170609
  18. URSODIOL. [Concomitant]
     Active Substance: URSODIOL
     Dosage: 300 MG, PRN
     Dates: start: 20170526, end: 20170616
  19. PREVACID [Concomitant]
     Active Substance: LANSOPRAZOLE
     Dosage: 30 MG, QD
     Dates: start: 20161221, end: 20180606
  20. ACETAMINOPHEN. [Concomitant]
     Active Substance: ACETAMINOPHEN
     Dosage: 1000 MG, PRN
     Dates: start: 20170530, end: 20170609
  21. FOLVITE [Concomitant]
     Active Substance: FOLIC ACID
     Dosage: 1 MG, QD
     Route: 048
     Dates: start: 20170531, end: 20180606
  22. TUMS [Concomitant]
     Active Substance: CALCIUM CARBONATE
     Indication: DYSPEPSIA
     Dosage: 500 MG, QID, PRN
     Route: 048
  23. LOVENOX [Concomitant]
     Active Substance: ENOXAPARIN SODIUM
     Dosage: 40 MG, BID, (DOSE ADJUSTED PER ANTI-XA LEVEL)
     Route: 058
  24. KEPPRA [Concomitant]
     Active Substance: LEVETIRACETAM
     Dosage: 750 MG, BID
     Route: 048
  25. KEPPRA [Concomitant]
     Active Substance: LEVETIRACETAM
     Dosage: TITRATED DOWN TO 750 MG, BID
     Dates: start: 20170620
  26. BACTRIM [Concomitant]
     Active Substance: SULFAMETHOXAZOLE\TRIMETHOPRIM
     Dosage: 960 MG, BID, ON MONDAYS AND THURSDAYS
     Route: 048
  27. MAGNESIUM SULFATE. [Concomitant]
     Active Substance: MAGNESIUM SULFATE
     Dosage: 2 G, PRN
     Dates: start: 20170525, end: 20170714
  28. SIMETHICONE (DIMETHICONE) [Concomitant]
     Active Substance: DIMETHICONE
     Dosage: 80 MG, PRN
     Dates: start: 20170518, end: 20170730
  29. NEURONTIN [Concomitant]
     Active Substance: GABAPENTIN
     Dosage: 600 MG, HS
     Route: 048
     Dates: start: 20161225, end: 20180606
  30. LIORESAL [Concomitant]
     Active Substance: BACLOFEN
     Dosage: 5 MG, BID, PRN
     Route: 048
     Dates: start: 20180125
  31. BACTRIM [Concomitant]
     Active Substance: SULFAMETHOXAZOLE\TRIMETHOPRIM
     Dosage: 1 DF, PRN
     Dates: start: 20170622, end: 20170717
  32. VANCOMYCIN [Concomitant]
     Active Substance: VANCOMYCIN
     Dosage: 125 MG, EVERY 3 DAYS FOR 14 DAYS
     Route: 048
     Dates: start: 20170903
  33. CEFEPIME [Concomitant]
     Active Substance: CEFEPIME HYDROCHLORIDE
     Dosage: 2000 MG, PRN
     Dates: start: 20170604, end: 20170615
  34. FUROSEMIDE. [Concomitant]
     Active Substance: FUROSEMIDE
     Dosage: 40 MG, PRN
     Dates: start: 20170527, end: 20170702
  35. ALBUMIN [Concomitant]
     Active Substance: ALBUMIN HUMAN
     Dosage: UNK
     Dates: start: 20170508, end: 20170508
  36. DAPSONE. [Concomitant]
     Active Substance: DAPSONE
     Dosage: UNK
     Dates: start: 20170508
  37. SIMETHICONE (DIMETHICONE) [Concomitant]
     Active Substance: DIMETHICONE
     Indication: FLATULENCE
     Dosage: 80 MG,  Q6H; PRN
     Route: 048
     Dates: start: 20170508
  38. LIDOCAINE. [Concomitant]
     Active Substance: LIDOCAINE
     Dosage: 10 ML, PRN
     Dates: start: 20170505, end: 20170629
  39. HEPARIN [Concomitant]
     Active Substance: HEPARIN SODIUM
     Dosage: UNK
     Dates: start: 20170526, end: 20170526
  40. VIMPAT [Concomitant]
     Active Substance: LACOSAMIDE
     Dosage: 200 MG, BID
  41. KEPPRA [Concomitant]
     Active Substance: LEVETIRACETAM
     Dosage: TITRATED DOWN TO 750 MG BID
     Dates: start: 20170723
  42. VANCOMYCIN [Concomitant]
     Active Substance: VANCOMYCIN
     Dosage: 125 MG, EVERY OTHER DAY; FOR 7 DAYS
     Route: 048
     Dates: start: 20170827
  43. PANTOPRAZOLE [Concomitant]
     Active Substance: PANTOPRAZOLE
     Indication: GASTROOESOPHAGEAL REFLUX DISEASE
     Dosage: 40 MG, QD
     Dates: start: 20170614, end: 20170620
  44. MESNA. [Suspect]
     Active Substance: MESNA
     Indication: PROPHYLAXIS
     Dosage: 1410 MG
     Route: 042
     Dates: start: 20170528, end: 20170528
  45. ATIVAN [Concomitant]
     Active Substance: LORAZEPAM
     Indication: ANXIETY
     Dosage: 0.5 MG, BID
     Route: 048
     Dates: start: 20161219
  46. ATIVAN [Concomitant]
     Active Substance: LORAZEPAM
     Dosage: UNK
     Route: 041
     Dates: start: 20170615
  47. DEXAMETHASONE. [Concomitant]
     Active Substance: DEXAMETHASONE
     Dosage: 10 MG, BID
     Dates: start: 20170526, end: 20170528
  48. OLANZAPINE. [Concomitant]
     Active Substance: OLANZAPINE
     Dosage: 15 MG, PRN
     Dates: start: 20180607, end: 20180614
  49. ONDANSETRON [Concomitant]
     Active Substance: ONDANSETRON
     Indication: INSOMNIA
     Dosage: 4 MG, PRN
     Dates: start: 20170528, end: 20170528
  50. FLUCONAZOLE. [Concomitant]
     Active Substance: FLUCONAZOLE
     Dosage: 400 MG, PRN
     Dates: start: 20170531, end: 20170630
  51. XANAX [Concomitant]
     Active Substance: ALPRAZOLAM
     Dosage: 0.5 MG, BID PRN
     Route: 048
     Dates: start: 20180126
  52. CALCIUM GLUCONATE. [Concomitant]
     Active Substance: CALCIUM GLUCONATE
     Dosage: 1 G, PRN
     Dates: start: 20170527, end: 20170619
  53. CYCLOPHOSPHAMIDE. [Suspect]
     Active Substance: CYCLOPHOSPHAMIDE
     Indication: BONE MARROW CONDITIONING REGIMEN
     Dosage: 900 MG/M2, QD
     Route: 042
     Dates: start: 20170528, end: 20170528
  54. ATIVAN [Concomitant]
     Active Substance: LORAZEPAM
     Dosage: 0.5 MG, UNK
     Route: 048
  55. ATIVAN [Concomitant]
     Active Substance: LORAZEPAM
     Dosage: 4 MG, PRN
     Dates: start: 20170526, end: 20170616
  56. OLANZAPINE. [Concomitant]
     Active Substance: OLANZAPINE
     Dosage: UNK
     Dates: start: 20170512, end: 20170608
  57. LOVENOX [Concomitant]
     Active Substance: ENOXAPARIN SODIUM
     Dosage: 70 MG, BID
     Dates: start: 20170627, end: 20171120
  58. BACTRIM [Concomitant]
     Active Substance: SULFAMETHOXAZOLE\TRIMETHOPRIM
     Dosage: UNK
     Dates: start: 20170616, end: 20170618
  59. VANCOMYCIN [Concomitant]
     Active Substance: VANCOMYCIN
     Indication: CLOSTRIDIUM DIFFICILE COLITIS
     Dosage: UNK
     Dates: start: 20170708, end: 20180721
  60. VANCOMYCIN [Concomitant]
     Active Substance: VANCOMYCIN
     Dosage: 125 MG, QD; FOR 7 DAYS
     Route: 048
     Dates: start: 20170820
  61. INSULIN LISPRO [Concomitant]
     Active Substance: INSULIN LISPRO
     Dosage: 1 UNIT, ACHS PRN
     Route: 058
     Dates: start: 20180121
  62. FLUDARABINE [Suspect]
     Active Substance: FLUDARABINE PHOSPHATE
     Indication: BONE MARROW CONDITIONING REGIMEN
     Dosage: 25 MG/M2, QD
     Route: 042
     Dates: start: 20170526, end: 20170528
  63. ALLOPURINOL. [Concomitant]
     Active Substance: ALLOPURINOL
     Dosage: 300 MG, PRN
     Dates: start: 20170525, end: 20170624
  64. LIORESAL [Concomitant]
     Active Substance: BACLOFEN
     Dosage: 10 MG, PRN
     Dates: start: 20170528, end: 20170528
  65. DIPHENHYDRAMINE. [Concomitant]
     Active Substance: DIPHENHYDRAMINE
     Dosage: 12.5 MG, PRN
     Dates: start: 20170530, end: 20170603
  66. VIMPAT [Concomitant]
     Active Substance: LACOSAMIDE
     Dosage: 100 MG, BID
     Route: 048
  67. VIMPAT [Concomitant]
     Active Substance: LACOSAMIDE
     Dosage: TITRATED DOWN TO 100 MG, QD
     Dates: start: 20170723
  68. VANCOMYCIN [Concomitant]
     Active Substance: VANCOMYCIN
     Dosage: 125 MG, QID; 7 TO 14 DAYS
     Route: 048
     Dates: start: 20170730
  69. VANCOMYCIN [Concomitant]
     Active Substance: VANCOMYCIN
     Dosage: 125 MG, BID; FOR 7 DAYS
     Route: 048
     Dates: start: 20170813
  70. MEROPENEM. [Concomitant]
     Active Substance: MEROPENEM
     Dosage: 1000 MG, PRN
     Dates: start: 20170606, end: 20170612

REACTIONS (5)
  - Hypoxia [Recovered/Resolved]
  - Status epilepticus [Recovered/Resolved]
  - Cytokine release syndrome [Recovered/Resolved]
  - Hypotension [Recovered/Resolved]
  - Hypoxia [Recovered/Resolved]

NARRATIVE: CASE EVENT DATE: 20170608
